FAERS Safety Report 22102111 (Version 3)
Quarter: 2023Q2

REPORT INFORMATION
  Report Type: Spontaneous
  Country: NL (occurrence: NL)
  Receive Date: 20230316
  Receipt Date: 20230411
  Transmission Date: 20230722
  Serious: Yes (Other)
  Sender: FDA-Public Use
  Company Number: NL-002147023-NVSC2023NL042378

PATIENT
  Sex: Male
  Weight: 82 kg

DRUGS (3)
  1. NIFEDIPINE [Suspect]
     Active Substance: NIFEDIPINE
     Indication: Hypertension
     Dosage: 60 MILLIGRAM, QD (FOR 3 MONTHS)
     Route: 065
     Dates: start: 20230118
  2. NIFEDIPINE [Suspect]
     Active Substance: NIFEDIPINE
     Dosage: 30 MILLIGRAM
     Route: 065
     Dates: start: 20221118
  3. NIFEDIPINE [Suspect]
     Active Substance: NIFEDIPINE
     Dosage: 30 MILLIGRAM
     Route: 065
     Dates: start: 20230207, end: 20230212

REACTIONS (1)
  - Bradycardia [Recovered/Resolved]

NARRATIVE: CASE EVENT DATE: 20230202
